FAERS Safety Report 8862516 (Version 1)
Quarter: 2012Q4

REPORT INFORMATION
  Report Type: 
  Country: US (occurrence: US)
  Receive Date: 20121026
  Receipt Date: 20121026
  Transmission Date: 20130627
  Serious: Yes (Hospitalization, Other)
  Sender: FDA-Public Use
  Company Number: US-JNJFOC-20121010781

PATIENT
  Sex: Female
  Weight: 119.3 kg

DRUGS (9)
  1. TOPAMAX [Suspect]
     Indication: CONVULSION
     Route: 048
  2. TOPAMAX [Suspect]
     Indication: CONVULSION
     Dosage: initiated in 1980^s or 1990^s
     Route: 048
  3. TOPAMAX [Suspect]
     Indication: CONVULSION
     Route: 048
  4. TOPAMAX [Suspect]
     Indication: CONVULSION
     Route: 048
  5. TOPAMAX [Suspect]
     Indication: CONVULSION
     Route: 048
  6. TOPIRAMATE [Suspect]
     Indication: CONVULSION
     Route: 048
  7. ^RESCUE INHALERS^ [Suspect]
     Indication: CONVULSION
     Route: 065
  8. UNSPECIFIED SEIZURE MEDICATIONS [Suspect]
     Indication: CONVULSION
     Route: 065
     Dates: end: 2003
  9. DILANTIN [Concomitant]
     Indication: CONVULSION
     Route: 065

REACTIONS (7)
  - Therapeutic response decreased [Recovering/Resolving]
  - Weight decreased [Not Recovered/Not Resolved]
  - Osteoporosis [Not Recovered/Not Resolved]
  - Wrist fracture [Recovered/Resolved]
  - Metabolic acidosis [Not Recovered/Not Resolved]
  - Body height decreased [Not Recovered/Not Resolved]
  - Adverse reaction [Unknown]
